FAERS Safety Report 9342038 (Version 2)
Quarter: 2013Q2

REPORT INFORMATION
  Report Type: Spontaneous
  Country: FR (occurrence: FR)
  Receive Date: 20130611
  Receipt Date: 20130619
  Transmission Date: 20140414
  Serious: Yes (Death, Hospitalization)
  Sender: FDA-Public Use
  Company Number: FR-PFIZER INC-2013174447

PATIENT
  Age: 75 Year
  Sex: Female

DRUGS (9)
  1. CORDARONE [Suspect]
     Dosage: 1 DF (200 MG), 5 DAYS A WEEK
     Route: 048
     Dates: start: 201005, end: 20130419
  2. OFLOXACIN [Interacting]
     Indication: INFECTION
     Dosage: 200 MG, SINGLE
     Route: 042
     Dates: start: 20130420, end: 20130420
  3. SOTALEX [Interacting]
     Dosage: 80 MG, SINGLE
     Route: 048
     Dates: start: 20130420, end: 20130420
  4. KREDEX [Concomitant]
     Dosage: UNK
     Dates: start: 2010, end: 20130419
  5. TAHOR [Concomitant]
     Dosage: UNK
     Dates: end: 20130419
  6. LEVOTHYROX [Concomitant]
     Dosage: UNK
     Dates: end: 20130419
  7. DIFFU K [Concomitant]
     Dosage: UNK
     Dates: end: 20130419
  8. STAGID [Concomitant]
     Dosage: UNK
     Dates: end: 20130419
  9. PREVISCAN [Concomitant]
     Dosage: UNK
     Dates: end: 20130419

REACTIONS (8)
  - Wrong drug administered [Fatal]
  - Drug interaction [Fatal]
  - Cardiac arrest [Fatal]
  - Ventricular tachycardia [Fatal]
  - Renal failure acute [Unknown]
  - Multi-organ failure [Unknown]
  - Pyelonephritis [Unknown]
  - Sepsis [Unknown]
